FAERS Safety Report 13195024 (Version 1)
Quarter: 2017Q1

REPORT INFORMATION
  Report Type: Spontaneous
  Country: IT (occurrence: IT)
  Receive Date: 20170207
  Receipt Date: 20170207
  Transmission Date: 20170428
  Serious: Yes (Other)
  Sender: FDA-Public Use
  Company Number: IT-ASTRAZENECA-2017SE12299

PATIENT
  Age: 33856 Day
  Sex: Female

DRUGS (8)
  1. ZANEPID [Concomitant]
     Active Substance: LERCANIDIPINE
  2. ACETYLSALICYLIC ACID [Concomitant]
     Active Substance: ASPIRIN
  3. SERENASE [Concomitant]
     Active Substance: HALOPERIDOL
  4. DUROGESIC [Concomitant]
     Active Substance: FENTANYL
     Dosage: 12 MCG/HOUR
  5. SERTRALINE [Concomitant]
     Active Substance: SERTRALINE HYDROCHLORIDE
  6. QUETIAPINE. [Suspect]
     Active Substance: QUETIAPINE
     Route: 048
     Dates: start: 20161003, end: 20161014
  7. COMBISARTAN [Concomitant]
     Active Substance: HYDROCHLOROTHIAZIDE\VALSARTAN
     Dosage: 80 MG/1.25 MG
  8. ACETAMINOPHEN AND CODEINE [Concomitant]
     Active Substance: ACETAMINOPHEN\CODEINE PHOSPHATE
     Dosage: 500 MG + 30 MG EFFERVESCENT TABLET

REACTIONS (2)
  - Disorientation [Recovering/Resolving]
  - Sopor [Recovering/Resolving]

NARRATIVE: CASE EVENT DATE: 20161013
